FAERS Safety Report 8824010 (Version 1)
Quarter: 2012Q4

REPORT INFORMATION
  Report Type: 
  Country: US (occurrence: US)
  Receive Date: 20121003
  Receipt Date: 20121003
  Transmission Date: 20130627
  Serious: Yes (Hospitalization)
  Sender: FDA-Public Use
  Company Number: US-009507513-1210USA000839

PATIENT
  Age: 54 Year
  Sex: Female

DRUGS (4)
  1. JANUVIA [Suspect]
     Dosage: 1 DF, qd
     Route: 048
  2. GLIPIZIDE [Concomitant]
  3. METFORMIN [Concomitant]
  4. LYRICA [Concomitant]

REACTIONS (1)
  - Pancreatitis [Unknown]
